FAERS Safety Report 23058730 (Version 1)
Quarter: 2023Q4

REPORT INFORMATION
  Report Type: Spontaneous
  Country: DE (occurrence: None)
  Receive Date: 20231012
  Receipt Date: 20231012
  Transmission Date: 20240110
  Serious: Yes (Hospitalization, Other)
  Sender: FDA-Public Use
  Company Number: 2023A225455

PATIENT
  Age: 59 Year
  Sex: Male
  Weight: 83 kg

DRUGS (2)
  1. DAPAGLIFLOZIN [Suspect]
     Active Substance: DAPAGLIFLOZIN
     Indication: Alport^s syndrome
     Route: 048
     Dates: start: 20210901, end: 20230807
  2. DAPAGLIFLOZIN [Suspect]
     Active Substance: DAPAGLIFLOZIN
     Indication: Chronic kidney disease
     Route: 048
     Dates: start: 20210901, end: 20230807

REACTIONS (4)
  - Scrotal swelling [Unknown]
  - Pruritus [Unknown]
  - Fournier^s gangrene [Recovered/Resolved with Sequelae]
  - Genital discolouration [Unknown]

NARRATIVE: CASE EVENT DATE: 20230807
